FAERS Safety Report 10803357 (Version 2)
Quarter: 2015Q1

REPORT INFORMATION
  Report Type: Spontaneous
  Country: US (occurrence: US)
  Receive Date: 20150217
  Receipt Date: 20150326
  Transmission Date: 20150721
  Serious: Yes (Hospitalization)
  Sender: FDA-Public Use
  Company Number: US-BAYER-2015-023988

PATIENT
  Age: 29 Year
  Sex: Female
  Weight: 95.24 kg

DRUGS (3)
  1. MIRENA [Suspect]
     Active Substance: LEVONORGESTREL
     Indication: CONTRACEPTION
     Dosage: 20 MCG/24HR, CONT
     Route: 015
     Dates: start: 20090817, end: 20110331
  2. NUVARING [Concomitant]
     Active Substance: ETHINYL ESTRADIOL\ETONOGESTREL
     Indication: CONTRACEPTION
  3. CYMBALTA [Concomitant]
     Active Substance: DULOXETINE HYDROCHLORIDE
     Indication: ANXIETY
     Dosage: 60 MG, UNK
     Dates: start: 2004

REACTIONS (12)
  - Medical device discomfort [None]
  - Internal injury [None]
  - Depressed mood [None]
  - Uterine perforation [None]
  - Pelvic pain [None]
  - Genital haemorrhage [None]
  - Injury [None]
  - Emotional distress [None]
  - Abdominal pain [None]
  - Depression [None]
  - Anxiety [None]
  - Fear [None]

NARRATIVE: CASE EVENT DATE: 2011
